FAERS Safety Report 6200075-3 (Version None)
Quarter: 2009Q2

REPORT INFORMATION
  Report Type: 
  Country: None (occurrence: None)
  Receive Date: 20090522
  Receipt Date: 20090514
  Transmission Date: 20091009
  Serious: Yes (Hospitalization)
  Sender: FDA-Public Use
  Company Number: ES-ABBOTT-09P-144-0558138-01

PATIENT
  Sex: Male
  Weight: 47 kg

DRUGS (11)
  1. HUMIRA [Suspect]
     Indication: RHEUMATOID ARTHRITIS
     Route: 058
     Dates: start: 20040922
  2. MIRTAZAPINA [Concomitant]
     Indication: DEPRESSION
     Dates: start: 20070401
  3. MYOLASTAM [Concomitant]
     Indication: RHEUMATOID ARTHRITIS
     Dates: start: 20030901
  4. CITALOPRAM HYDROBROMIDE [Concomitant]
     Indication: DEPRESSION
     Dates: start: 20061201
  5. CLAVERSAL [Concomitant]
     Indication: CROHN'S DISEASE
     Dates: start: 20051101
  6. INDAPAMIDA [Concomitant]
     Indication: HYPERTENSION
     Dates: start: 20071101
  7. LORAZEPAM [Concomitant]
     Indication: DEPRESSION
     Dates: start: 20051001
  8. NEXIUM [Concomitant]
     Indication: PROPHYLAXIS AGAINST GASTROINTESTINAL ULCER
     Dates: start: 20030101
  9. PREDNISONA [Concomitant]
     Indication: RHEUMATOID ARTHRITIS
     Dates: start: 20051101
  10. ANTALGIL [Concomitant]
     Indication: RHEUMATOID ARTHRITIS
     Dates: start: 20080601
  11. XUMADOL [Concomitant]
     Indication: RHEUMATOID ARTHRITIS
     Dates: start: 20060901

REACTIONS (3)
  - GASTROENTERITIS [None]
  - MYALGIA [None]
  - PRODUCTIVE COUGH [None]
